FAERS Safety Report 4614852-3 (Version None)
Quarter: 2005Q1

REPORT INFORMATION
  Report Type: 
  Country: None (occurrence: None)
  Receive Date: 20050318
  Receipt Date: 20050318
  Transmission Date: 20050727
  Serious: No
  Sender: FDA-Public Use
  Company Number: None

PATIENT
  Sex: Male

DRUGS (1)
  1. FLOMAX [Suspect]
     Dosage: ONCE  DAILY  ORAL
     Route: 048

REACTIONS (2)
  - CATARACT OPERATION COMPLICATION [None]
  - IRIS DISORDER [None]
